FAERS Safety Report 14230696 (Version 1)
Quarter: 2017Q4

REPORT INFORMATION
  Report Type: Other
  Country: IT (occurrence: IT)
  Receive Date: 20171128
  Receipt Date: 20171128
  Transmission Date: 20180321
  Serious: Yes (Hospitalization)
  Sender: FDA-Public Use
  Company Number: IT-CELLTRION INC.-2017IT016110

PATIENT

DRUGS (6)
  1. FLEBOCORTID RICHTER [Concomitant]
     Indication: PREMEDICATION
     Dosage: 100 MG/2 ML
  2. REMSIMA [Suspect]
     Active Substance: INFLIXIMAB
     Indication: COLITIS ULCERATIVE
     Dosage: 500 MG, TOTAL
     Route: 042
     Dates: start: 20171031, end: 20171031
  3. DELTACORTENE [Concomitant]
     Active Substance: PREDNISONE
     Dosage: 10 DF, UNK
  4. ASACOL [Concomitant]
     Active Substance: MESALAMINE
     Dosage: 30 DF, UNK
  5. PANTORC [Concomitant]
     Active Substance: PANTOPRAZOLE SODIUM
     Dosage: 14 DF; 40 MG IN AL/AL BLISTER
  6. AZATHIOPRINE. [Concomitant]
     Active Substance: AZATHIOPRINE

REACTIONS (2)
  - Somnolence [Not Recovered/Not Resolved]
  - Meningitis bacterial [Unknown]

NARRATIVE: CASE EVENT DATE: 20171108
